FAERS Safety Report 23197457 (Version 3)
Quarter: 2023Q4

REPORT INFORMATION
  Report Type: Spontaneous
  Country: JP (occurrence: JP)
  Receive Date: 20231117
  Receipt Date: 20231130
  Transmission Date: 20240109
  Serious: Yes (Hospitalization)
  Sender: FDA-Public Use
  Company Number: JP-OTSUKA-2023_029903

PATIENT
  Age: 61 Year
  Sex: Male
  Weight: 95.6 kg

DRUGS (4)
  1. REXULTI [Suspect]
     Active Substance: BREXPIPRAZOLE
     Indication: Allergy test
     Dosage: 1 MG, QD
     Route: 048
     Dates: start: 20230528, end: 20230529
  2. AMLODIPINE BESYLATE [Concomitant]
     Active Substance: AMLODIPINE BESYLATE
     Indication: Hypertension
     Dosage: 10 MG, QD
     Route: 048
     Dates: start: 20210123
  3. CANDESARTAN CILEXETIL\HYDROCHLOROTHIAZIDE [Concomitant]
     Active Substance: CANDESARTAN CILEXETIL\HYDROCHLOROTHIAZIDE
     Indication: Hypertension
     Dosage: 1 TABLET/TIME, QD
     Route: 048
     Dates: start: 20181117
  4. HERBALS [Concomitant]
     Active Substance: HERBALS
     Indication: Constipation
     Dosage: 2.5 G, BID
     Route: 048
     Dates: start: 20191019, end: 20231115

REACTIONS (1)
  - Ileus [Recovered/Resolved]

NARRATIVE: CASE EVENT DATE: 20231112
